FAERS Safety Report 4358763-X (Version None)
Quarter: 2004Q2

REPORT INFORMATION
  Report Type: 
  Country: None (occurrence: None)
  Receive Date: 20040511
  Receipt Date: 20040428
  Transmission Date: 20050107
  Serious: Yes (Hospitalization)
  Sender: FDA-Public Use
  Company Number: 2004210935US

PATIENT
  Age: 34 Year
  Sex: Male

DRUGS (5)
  1. CELEBREX [Suspect]
     Dosage: 200 MG, BID
  2. LAMIVUDINE [Concomitant]
  3. LOPINAVIR (LOPINAVIR) [Concomitant]
  4. TENOFOVIR [Concomitant]
  5. PREVACID [Concomitant]

REACTIONS (4)
  - ANOREXIA [None]
  - ASTHENIA [None]
  - TUBULOINTERSTITIAL NEPHRITIS [None]
  - URINE OUTPUT DECREASED [None]
